FAERS Safety Report 10948315 (Version 1)
Quarter: 2015Q1

REPORT INFORMATION
  Report Type: Spontaneous
  Country: CN (occurrence: CN)
  Receive Date: 20150324
  Receipt Date: 20150324
  Transmission Date: 20150721
  Serious: Yes (Congenital Anomaly, Other)
  Sender: FDA-Public Use
  Company Number: CN-CIPLA LTD.-2015CN01816

PATIENT

DRUGS (6)
  1. LAMIVUDINE. [Suspect]
     Active Substance: LAMIVUDINE
     Route: 064
  2. ADEFOVIR [Suspect]
     Active Substance: ADEFOVIR
     Route: 064
  3. TELBIVUDINE [Suspect]
     Active Substance: TELBIVUDINE
     Route: 064
  4. TENOFOVIR DISOFOXIL FUMARATE [Suspect]
     Active Substance: TENOFOVIR DISOPROXIL FUMARATE
     Dosage: 300MG/D
     Route: 064
  5. ENTECAVIR. [Suspect]
     Active Substance: ENTECAVIR
     Route: 064
  6. INTERFERON [Suspect]
     Active Substance: INTERFERON
     Route: 064

REACTIONS (2)
  - Foetal exposure during pregnancy [Unknown]
  - Atrial septal defect [Recovered/Resolved]
